FAERS Safety Report 14924568 (Version 1)
Quarter: 2018Q2

REPORT INFORMATION
  Report Type: Spontaneous
  Country: DE (occurrence: DE)
  Receive Date: 20180522
  Receipt Date: 20180522
  Transmission Date: 20180711
  Serious: Yes (Hospitalization, Disabling)
  Sender: FDA-Public Use
  Company Number: DE-ALLERGAN-1826797US

PATIENT
  Age: 80 Year
  Sex: Female
  Weight: 58 kg

DRUGS (9)
  1. ROACTEMRA [Suspect]
     Active Substance: TOCILIZUMAB
     Dosage: 480 MG, UNK
     Route: 042
     Dates: start: 20131002, end: 20131002
  2. PREDNISOLON [Suspect]
     Active Substance: PREDNISOLONE
     Indication: RHEUMATOID ARTHRITIS
     Dosage: 3 MG, QD
     Route: 048
  3. ROACTEMRA [Suspect]
     Active Substance: TOCILIZUMAB
     Indication: RHEUMATOID ARTHRITIS
     Dosage: 480 MG, UNK
     Route: 042
     Dates: start: 20131030, end: 20131030
  4. ROACTEMRA [Suspect]
     Active Substance: TOCILIZUMAB
     Dosage: 480 MG, UNK
     Route: 042
     Dates: start: 20130903, end: 20130903
  5. ROACTEMRA [Suspect]
     Active Substance: TOCILIZUMAB
     Dosage: 480 MG, Q MONTH
     Route: 042
     Dates: start: 20130227, end: 20131204
  6. L-THYROX JOD [Suspect]
     Active Substance: LEVOTHYROXINE SODIUM\POTASSIUM IODIDE
     Indication: PROPHYLAXIS
     Route: 048
  7. HYDROCHLOROTHIAZIDE UNK [Suspect]
     Active Substance: HYDROCHLOROTHIAZIDE
     Indication: HYPERTENSION
     Dosage: 1 DF, QD
     Route: 048
  8. KALINOR RETARD [Suspect]
     Active Substance: POTASSIUM CHLORIDE
     Indication: HYPOKALAEMIA
     Dosage: 1 DF, QD
     Route: 048
  9. ALENDRONIC ACID [Suspect]
     Active Substance: ALENDRONIC ACID
     Indication: OSTEOPOROSIS
     Dosage: 70 MG, Q WEEK
     Route: 048

REACTIONS (3)
  - Comminuted fracture [Recovered/Resolved with Sequelae]
  - Purulence [Recovered/Resolved with Sequelae]
  - Fall [Unknown]

NARRATIVE: CASE EVENT DATE: 20140106
